FAERS Safety Report 11597195 (Version 1)
Quarter: 2015Q4

REPORT INFORMATION
  Report Type: Spontaneous
  Country: US (occurrence: US)
  Receive Date: 20151006
  Receipt Date: 20151006
  Transmission Date: 20160304
  Serious: No
  Sender: FDA-Public Use
  Company Number: US-009507513-1509USA013235

PATIENT
  Age: 59 Year
  Sex: Male

DRUGS (9)
  1. ABILIFY [Concomitant]
     Active Substance: ARIPIPRAZOLE
  2. DIVALPROEX SODIUM. [Concomitant]
     Active Substance: DIVALPROEX SODIUM
  3. BYSTOLIC [Concomitant]
     Active Substance: NEBIVOLOL HYDROCHLORIDE
  4. BUPROPION HYDROCHLORIDE. [Concomitant]
     Active Substance: BUPROPION HYDROCHLORIDE
  5. CLONAZEPAM. [Concomitant]
     Active Substance: CLONAZEPAM
  6. CREON [Concomitant]
     Active Substance: PANCRELIPASE AMYLASE\PANCRELIPASE LIPASE\PANCRELIPASE PROTEASE
  7. HYDROXYCHLOROQUINE SULFATE. [Concomitant]
     Active Substance: HYDROXYCHLOROQUINE SULFATE
  8. BELSOMRA [Suspect]
     Active Substance: SUVOREXANT
     Indication: INSOMNIA
     Dosage: 1 PILL AT BEDTIME ( 20 MG, QPM)
     Route: 048
     Dates: start: 20150415, end: 20150701
  9. ALLEGRA [Concomitant]
     Active Substance: FEXOFENADINE HYDROCHLORIDE

REACTIONS (1)
  - Benign prostatic hyperplasia [Recovered/Resolved]

NARRATIVE: CASE EVENT DATE: 20150415
